FAERS Safety Report 5117935-7 (Version None)
Quarter: 2006Q3

REPORT INFORMATION
  Report Type: 
  Country: None (occurrence: None)
  Receive Date: 20060926
  Receipt Date: 20060914
  Transmission Date: 20061208
  Serious: Yes (Other)
  Sender: FDA-Public Use
  Company Number: 2006098295

PATIENT
  Age: 69 Year
  Sex: Male

DRUGS (3)
  1. XALATAN [Suspect]
     Indication: GLAUCOMA
     Dosage: 1 DROP (1 DROP, 1 IN 1 D), INTRAOCULAR
     Route: 031
  2. DETANTOL (BUNAZOSIN HYDROCHLORIDE) [Concomitant]
  3. AZOPT [Concomitant]

REACTIONS (4)
  - ALCOHOL USE [None]
  - DRUG HYPERSENSITIVITY [None]
  - ERYTHEMA [None]
  - URTICARIA [None]
